FAERS Safety Report 11147037 (Version 1)
Quarter: 2015Q2

REPORT INFORMATION
  Report Type: Spontaneous
  Country: US (occurrence: US)
  Receive Date: 20150528
  Receipt Date: 20150528
  Transmission Date: 20150821
  Serious: Yes (Other)
  Sender: FDA-Public Use
  Company Number: US-PFIZER INC-2015177045

PATIENT
  Age: 60 Year
  Sex: Female
  Weight: 129.25 kg

DRUGS (22)
  1. BACLOFEN. [Concomitant]
     Active Substance: BACLOFEN
     Dosage: 10 MG, UNK
  2. CARDIZEM [Concomitant]
     Active Substance: DILTIAZEM HYDROCHLORIDE
     Dosage: UNK
  3. HYDROCODONE BITARTRATE AND ACETAMINOPHEN [Concomitant]
     Active Substance: ACETAMINOPHEN\HYDROCODONE BITARTRATE
     Indication: PAIN
     Dosage: (HYDROCODONE 5 MG-ACETAMINOPHEN 325 MG ONE EVERY SIX HOURS), AS NEEDED
  4. LASIX [Concomitant]
     Active Substance: FUROSEMIDE
     Dosage: 40 MG, TABLET 3 EVERY MORNING, ADDITIONAL 80MG IF GAIN WEIGHT
  5. BIOTIN [Concomitant]
     Active Substance: BIOTIN
     Dosage: 1 DF, TABLET DAILY
  6. CALCIUM/VITAMIN D3 [Concomitant]
     Dosage: ((600 MG CALCIUM MIXED TOGETHER WITH 400 VITAMIN D))1 DF, 3X/DAY
  7. VITAMIN C [Concomitant]
     Active Substance: ASCORBIC ACID
     Dosage: UNK, 2X/DAY
  8. METOLAZONE. [Concomitant]
     Active Substance: METOLAZONE
     Indication: CARDIAC FAILURE CONGESTIVE
     Dosage: (EVERY THREE DAYS )
  9. NYSTATIN. [Concomitant]
     Active Substance: NYSTATIN
     Indication: FUNGAL INFECTION
     Dosage: UNK, AS NEEDED
  10. REVATIO [Suspect]
     Active Substance: SILDENAFIL CITRATE
     Dosage: 20 MG, 3X/DAY
     Route: 048
  11. FLONASE [Concomitant]
     Active Substance: FLUTICASONE PROPIONATE
     Indication: NASAL DISCOMFORT
     Dosage: (TWO SPRAYS IN BOTH NOSE)
     Route: 045
  12. NIACIN. [Concomitant]
     Active Substance: NIACIN
     Indication: BLOOD CHOLESTEROL INCREASED
     Dosage: 500 MG, 1X/DAY
  13. NYSTATIN. [Concomitant]
     Active Substance: NYSTATIN
     Indication: FUNGAL INFECTION
     Dosage: UNK, AS NEEDED
  14. REMODULIN [Concomitant]
     Active Substance: TREPROSTINIL
     Indication: PULMONARY HYPERTENSION
     Dosage: UNK
     Route: 042
  15. IRON [Concomitant]
     Active Substance: IRON
     Dosage: UNK, 2X/DAY
  16. MULTIVITAMINS [Concomitant]
     Active Substance: VITAMINS
     Dosage: UNK, 1X/DAY
  17. POTASSIUM [Concomitant]
     Active Substance: POTASSIUM
     Dosage: UNK
  18. GABAPENTIN. [Concomitant]
     Active Substance: GABAPENTIN
     Dosage: UNK
  19. CLARITIN [Concomitant]
     Active Substance: LORATADINE
     Dosage: 10 MG, 2X/DAY, TABLETS
  20. CRANBERRY. [Concomitant]
     Active Substance: CRANBERRY
     Dosage: UNK, 3X/DAY
  21. METOPROLOL SUCCINATE. [Concomitant]
     Active Substance: METOPROLOL SUCCINATE
     Indication: ARRHYTHMIA
     Dosage: 1 DF, DAILY
  22. METFORMIN [Concomitant]
     Active Substance: METFORMIN HYDROCHLORIDE
     Indication: DIABETES MELLITUS
     Dosage: UNK, 1X/DAY

REACTIONS (6)
  - Arrhythmia [Not Recovered/Not Resolved]
  - Fall [Unknown]
  - Ankle fracture [Recovering/Resolving]
  - Lower limb fracture [Recovering/Resolving]
  - Pulmonary embolism [Not Recovered/Not Resolved]
  - Gastrointestinal haemorrhage [Not Recovered/Not Resolved]

NARRATIVE: CASE EVENT DATE: 20150314
